FAERS Safety Report 9173314 (Version 2)
Quarter: 2013Q2

REPORT INFORMATION
  Report Type: Spontaneous
  Country: US (occurrence: US)
  Receive Date: 20130320
  Receipt Date: 20130419
  Transmission Date: 20140414
  Serious: Yes (Other)
  Sender: FDA-Public Use
  Company Number: US-JNJFOC-20130113684

PATIENT
  Age: 48 Year
  Sex: Female
  Weight: 67.59 kg

DRUGS (12)
  1. REMICADE [Suspect]
     Indication: COLITIS
     Route: 042
  2. REMICADE [Suspect]
     Indication: COLITIS
     Dosage: 4 INFUSIONS AT 0,2 AND 6 WEEKS INTERVAL AND THEN AT 8 WEEKS INTERVAL.
     Route: 042
     Dates: start: 201204, end: 201211
  3. OMEPRAZOLE [Suspect]
     Indication: GASTROOESOPHAGEAL REFLUX DISEASE
     Dosage: DELAYED RELEASE TABLET 2 TIMES EVERYDAY BEFORE MEAL
     Route: 048
  4. AMITRIPTYLINE [Suspect]
     Indication: MIGRAINE
     Dosage: AT BEDTIME
     Route: 048
  5. FOSAMAX [Suspect]
     Indication: OSTEOPOROSIS
     Dosage: EVERYDAY IN THE MORNING, AT LEAST 30 MIN BEFORE FIRST FOOD, BEVERAGE, OR MEDICATION OF DAY.
     Route: 048
  6. VACCINES [Suspect]
     Indication: PRODUCT USED FOR UNKNOWN INDICATION
     Dosage: ZOSTER VACCINE
     Route: 065
  7. BETAMETHASONE DIPROPIONATE [Concomitant]
     Dosage: MASSAGE LIGHTLY IN THE AFFECTED AREA(S) UNTIL IT DISAPPEARS
     Route: 061
  8. CELEBREX [Concomitant]
     Dosage: AS NEEDED
     Route: 048
  9. CYCLOBENZAPRINE [Concomitant]
     Dosage: 1-2 TIMES AS NEEDED
     Route: 048
  10. HYDROXYZINE [Concomitant]
     Dosage: EVERY 8 HOURS AS NEEDED
     Route: 048
  11. RESTASIS [Concomitant]
     Dosage: EVERY 12 HOURS INTO AFFECTED EYE(S)
     Route: 047
  12. TRIAMCINOLONE ACETONIDE [Concomitant]
     Route: 061

REACTIONS (5)
  - Vasculitis [Recovered/Resolved]
  - Colitis ulcerative [Unknown]
  - Sjogren^s syndrome [Unknown]
  - Stress [Unknown]
  - Rash [Unknown]
